FAERS Safety Report 5309727-0 (Version None)
Quarter: 2007Q2

REPORT INFORMATION
  Report Type: 
  Country: None (occurrence: None)
  Receive Date: 20070427
  Receipt Date: 20061219
  Transmission Date: 20071010
  Serious: No
  Sender: FDA-Public Use
  Company Number: US-GLAXOSMITHKLINE-A0632119A

PATIENT
  Age: 40 Year
  Sex: Male

DRUGS (3)
  1. ZOFRAN [Suspect]
     Indication: DRUG USE FOR UNKNOWN INDICATION
     Route: 030
  2. BLOOD PRESSURE MED [Concomitant]
  3. BLOOD THINNER [Concomitant]

REACTIONS (1)
  - INJECTION SITE PAIN [None]
